FAERS Safety Report 8256852-0 (Version None)
Quarter: 2012Q2

REPORT INFORMATION
  Report Type: 
  Country: None (occurrence: None)
  Receive Date: 20120403
  Receipt Date: 20120329
  Transmission Date: 20120825
  Serious: Yes (Other)
  Sender: FDA-Public Use
  Company Number: US-PFIZER INC-2011083070

PATIENT
  Sex: Female
  Weight: 95.238 kg

DRUGS (9)
  1. DOXEPIN [Concomitant]
     Dosage: UNK
  2. CLOZAPINE [Concomitant]
     Dosage: UNK
  3. LYRICA [Suspect]
     Indication: TRIGEMINAL NEURALGIA
     Dosage: 75 MG, 2X/DAY
     Route: 048
     Dates: start: 20080301
  4. CYMBALTA [Concomitant]
     Dosage: UNK
  5. ALLEGRA [Concomitant]
     Dosage: UNK
  6. FENTANYL [Concomitant]
     Dosage: UNK
  7. OXYCODONE [Concomitant]
     Dosage: UNK
  8. MOTRIN [Concomitant]
     Dosage: UNK
  9. TRICOR [Concomitant]
     Dosage: UNK

REACTIONS (3)
  - WEIGHT INCREASED [None]
  - TINNITUS [None]
  - BLINDNESS [None]
